FAERS Safety Report 5500829-2 (Version None)
Quarter: 2007Q4

REPORT INFORMATION
  Report Type: 
  Country: None (occurrence: None)
  Receive Date: 20071029
  Receipt Date: 20071023
  Transmission Date: 20080405
  Serious: Yes (Hospitalization)
  Sender: FDA-Public Use
  Company Number: B0491452A

PATIENT
  Age: 72 Year
  Sex: Male
  Weight: 53 kg

DRUGS (8)
  1. VALTREX [Suspect]
     Indication: HERPES ZOSTER
     Dosage: 500MG SEE DOSAGE TEXT
     Route: 048
     Dates: start: 20071010, end: 20071012
  2. AMLODIPINE [Concomitant]
     Indication: HYPERTENSION
     Dosage: 10MG PER DAY
     Route: 048
     Dates: start: 20050101
  3. CALTAN [Concomitant]
     Dosage: 3000MG PER DAY
     Route: 048
     Dates: start: 20050101
  4. MICARDIS [Concomitant]
     Indication: HYPERTENSION
     Dosage: 80MG PER DAY
     Route: 048
     Dates: start: 20050101
  5. ASPIRIN [Concomitant]
     Indication: ANGINA PECTORIS
     Dosage: 100MG PER DAY
     Route: 048
     Dates: start: 20050101
  6. ANPLAG [Concomitant]
     Dosage: 200MG PER DAY
     Route: 048
     Dates: start: 20050101
  7. LANSOPRAZOLE [Concomitant]
     Indication: GASTRITIS
     Dosage: 30MG PER DAY
     Route: 048
     Dates: start: 20050101
  8. GASTROM [Concomitant]
     Indication: GASTRITIS
     Dosage: 3G PER DAY
     Route: 048
     Dates: start: 20050101

REACTIONS (7)
  - DIZZINESS [None]
  - DROOLING [None]
  - DYSARTHRIA [None]
  - ENCEPHALOPATHY [None]
  - HALLUCINATION [None]
  - ILL-DEFINED DISORDER [None]
  - VERTIGO [None]
